FAERS Safety Report 8985823 (Version 4)
Quarter: 2013Q2

REPORT INFORMATION
  Report Type: Spontaneous
  Country: FR (occurrence: FR)
  Receive Date: 20121226
  Receipt Date: 20130516
  Transmission Date: 20140414
  Serious: Yes (Other)
  Sender: FDA-Public Use
  Company Number: FR-CELGENEUS-056-50794-12113093

PATIENT
  Age: 76 Year
  Sex: Female
  Weight: 51 kg

DRUGS (2)
  1. VIDAZA [Suspect]
     Indication: ACUTE MYELOID LEUKAEMIA
     Dosage: 110 MILLIGRAM
     Route: 058
     Dates: start: 201209
  2. VIDAZA [Suspect]
     Dosage: 90 MILLIGRAM
     Route: 065
     Dates: start: 201211, end: 201211

REACTIONS (1)
  - Vision blurred [Recovered/Resolved]
